FAERS Safety Report 9259333 (Version 2)
Quarter: 2013Q2

REPORT INFORMATION
  Report Type: Report from Study
  Country: US (occurrence: US)
  Receive Date: 20130427
  Receipt Date: 20130614
  Transmission Date: 20140414
  Serious: Yes (Death, Other)
  Sender: FDA-Public Use
  Company Number: US-ROCHE-1193292

PATIENT
  Age: 62 Year
  Sex: Male
  Weight: 68.55 kg

DRUGS (4)
  1. ZELBORAF [Suspect]
     Indication: METASTATIC MALIGNANT MELANOMA
     Route: 048
     Dates: start: 201302
  2. ZELBORAF [Suspect]
     Route: 048
     Dates: start: 20130115
  3. MORPHINE [Concomitant]
     Indication: PAIN
  4. ZOMETA [Concomitant]
     Indication: BONE DISORDER
     Route: 065
     Dates: start: 20130409

REACTIONS (7)
  - Hip fracture [Recovering/Resolving]
  - Squamous cell carcinoma of skin [Not Recovered/Not Resolved]
  - Fatigue [Not Recovered/Not Resolved]
  - Pain [Not Recovered/Not Resolved]
  - Weight increased [Not Recovered/Not Resolved]
  - Micturition frequency decreased [Not Recovered/Not Resolved]
  - Disease progression [Fatal]
